FAERS Safety Report 6028371-3 (Version None)
Quarter: 2009Q1

REPORT INFORMATION
  Report Type: 
  Country: None (occurrence: None)
  Receive Date: 20090106
  Receipt Date: 20090105
  Transmission Date: 20090719
  Serious: Yes (Death)
  Sender: FDA-Public Use
  Company Number: PHEH2008US11441

PATIENT
  Sex: Male

DRUGS (1)
  1. EXJADE [Suspect]
     Indication: MYELODYSPLASTIC SYNDROME
     Dosage: 1625 MG, QD
     Route: 048
     Dates: start: 20081008, end: 20081228

REACTIONS (2)
  - DISEASE PROGRESSION [None]
  - MYELODYSPLASTIC SYNDROME [None]
